FAERS Safety Report 7164479-7 (Version None)
Quarter: 2010Q4

REPORT INFORMATION
  Report Type: 
  Country: None (occurrence: None)
  Receive Date: 20101215
  Receipt Date: 20101202
  Transmission Date: 20110411
  Serious: Yes (Hospitalization)
  Sender: FDA-Public Use
  Company Number: PHHY2010US77791

PATIENT
  Sex: Male

DRUGS (1)
  1. GLEEVEC [Suspect]
     Indication: GRAFT VERSUS HOST DISEASE
     Dosage: 400 MG, QD
     Route: 048
     Dates: start: 20101007

REACTIONS (6)
  - CENTRAL VENOUS CATHETERISATION [None]
  - FLUID RETENTION [None]
  - FUNGAL INFECTION [None]
  - MOBILITY DECREASED [None]
  - SKIN TIGHTNESS [None]
  - SWELLING FACE [None]
